FAERS Safety Report 8001601-4 (Version None)
Quarter: 2011Q4

REPORT INFORMATION
  Report Type: 
  Country: None (occurrence: None)
  Receive Date: 20111219
  Receipt Date: 20111205
  Transmission Date: 20120403
  Serious: Yes (Other)
  Sender: FDA-Public Use
  Company Number: 2011MA017208

PATIENT
  Sex: Female
  Weight: 68.0396 kg

DRUGS (15)
  1. LISINOPRIL [Concomitant]
  2. LOPID [Concomitant]
  3. AMARYL [Concomitant]
  4. NAPROSYN [Concomitant]
  5. OMEGA 3 FATTY ACID [Concomitant]
  6. IRON [Concomitant]
  7. METFORMIN HCL [Concomitant]
  8. DIGOXIN [Suspect]
     Dosage: 250 MCG;QD;PO
     Route: 048
     Dates: start: 20020201, end: 20080507
  9. PROTONIX [Concomitant]
  10. VITAMIN B-12 [Concomitant]
  11. SIMVASTATIN [Concomitant]
  12. TRICOR [Concomitant]
  13. COREG [Concomitant]
  14. LASIX [Concomitant]
  15. LEVOXYL [Concomitant]

REACTIONS (21)
  - OSTEOARTHRITIS [None]
  - NAUSEA [None]
  - ANAEMIA [None]
  - RENAL FAILURE [None]
  - HYPERLIPIDAEMIA [None]
  - HYPERTRIGLYCERIDAEMIA [None]
  - HYPOTHYROIDISM [None]
  - HIGH DENSITY LIPOPROTEIN DECREASED [None]
  - ABDOMINAL PAIN [None]
  - EPIGASTRIC DISCOMFORT [None]
  - HYPERTENSION [None]
  - GASTROENTERITIS VIRAL [None]
  - CARDIAC FAILURE CONGESTIVE [None]
  - UPPER GASTROINTESTINAL HAEMORRHAGE [None]
  - RENAL FAILURE ACUTE [None]
  - ATRIAL FIBRILLATION [None]
  - GLYCOSYLATED HAEMOGLOBIN INCREASED [None]
  - TYPE 2 DIABETES MELLITUS [None]
  - PEPTIC ULCER [None]
  - FAECES DISCOLOURED [None]
  - TOXICITY TO VARIOUS AGENTS [None]
